FAERS Safety Report 12542112 (Version 1)
Quarter: 2016Q3

REPORT INFORMATION
  Report Type: Spontaneous
  Country: GB (occurrence: GB)
  Receive Date: 20160708
  Receipt Date: 20160708
  Transmission Date: 20161109
  Serious: Yes (Other)
  Sender: FDA-Public Use
  Company Number: PHFR2016GB005400

PATIENT
  Sex: Female

DRUGS (1)
  1. SECUKINUMAB [Suspect]
     Active Substance: SECUKINUMAB
     Indication: PSORIASIS
     Route: 065

REACTIONS (5)
  - Drug interaction [Unknown]
  - Vasculitic rash [Recovering/Resolving]
  - Malaise [Unknown]
  - Type III immune complex mediated reaction [Unknown]
  - Drug specific antibody present [Unknown]
